FAERS Safety Report 7944007-6 (Version None)
Quarter: 2011Q4

REPORT INFORMATION
  Report Type: 
  Country: None (occurrence: None)
  Receive Date: 20111128
  Receipt Date: 20111115
  Transmission Date: 20120403
  Serious: Yes (Other)
  Sender: FDA-Public Use
  Company Number: US-ROCHE-1013400

PATIENT
  Sex: Female

DRUGS (8)
  1. PREDNISONE TAB [Concomitant]
     Indication: RHEUMATOID ARTHRITIS
     Route: 048
     Dates: start: 20110901, end: 20111006
  2. HEPATITIS B VACCINE [Concomitant]
     Dates: start: 20111011, end: 20111011
  3. FOLIC ACID [Concomitant]
     Route: 048
     Dates: start: 20110901, end: 20111030
  4. CAFFEINE CITRATE [Concomitant]
     Dosage: DOSE 1 SERVIN
     Route: 048
     Dates: start: 20110901, end: 20111030
  5. HEPATITIS B VACCINE [Concomitant]
     Indication: HEPATITIS C
     Dates: start: 20110913, end: 20110913
  6. ACTEMRA [Suspect]
     Indication: RHEUMATOID ARTHRITIS
     Route: 042
     Dates: start: 20110922, end: 20110922
  7. IBUPROFEN [Concomitant]
     Indication: RHEUMATOID ARTHRITIS
     Route: 048
     Dates: start: 20110901, end: 20111011
  8. METHOTREXATE [Concomitant]
     Indication: RHEUMATOID ARTHRITIS
     Route: 048
     Dates: start: 20111001, end: 20111001

REACTIONS (2)
  - ABORTION SPONTANEOUS [None]
  - MATERNAL EXPOSURE DURING PREGNANCY [None]
